FAERS Safety Report 5074240-5 (Version None)
Quarter: 2006Q3

REPORT INFORMATION
  Report Type: 
  Country: None (occurrence: None)
  Receive Date: 20060714
  Receipt Date: 20060526
  Transmission Date: 20061208
  Serious: No
  Sender: FDA-Public Use
  Company Number: 2006SP002226

PATIENT
  Age: 69 Year
  Sex: Female
  Weight: 47.6277 kg

DRUGS (3)
  1. LUNESTA [Suspect]
     Indication: INSOMNIA
     Dosage: 3 MG;PRN;ORAL
     Route: 048
     Dates: start: 20060201, end: 20060523
  2. TAMOXIFEN CITRATE [Concomitant]
  3. FOSAMAX [Concomitant]

REACTIONS (3)
  - AMNESIA [None]
  - CONTUSION [None]
  - SLEEP WALKING [None]
